FAERS Safety Report 7522249-1 (Version None)
Quarter: 2011Q2

REPORT INFORMATION
  Report Type: 
  Country: None (occurrence: None)
  Receive Date: 20110517
  Receipt Date: 20110507
  Transmission Date: 20111010
  Serious: Yes (Other)
  Sender: FDA-Public Use
  Company Number: 2011027903

PATIENT
  Sex: Female
  Weight: 80.7403 kg

DRUGS (27)
  1. PRIVIGEN [Suspect]
  2. BACLOFEN [Concomitant]
  3. SINGULAIR [Concomitant]
  4. BENADRYL [Concomitant]
  5. GEODON [Concomitant]
  6. OBETROL [Concomitant]
  7. FISH OIL (FISH OIL) [Concomitant]
  8. PRIVIGEN [Suspect]
     Indication: HUMORAL IMMUNE DEFECT
     Dosage: (40 MG 1X/3 WEEKS, OVER 4.5 TO 5 HOURS INTRAVENOUS), (40 MG 1X/4 WEEKS INTRAVENOUS)
     Route: 042
     Dates: start: 20110405, end: 20110405
  9. PRIVIGEN [Suspect]
     Indication: PRIMARY IMMUNODEFICIENCY SYNDROME
     Dosage: (40 MG 1X/3 WEEKS, OVER 4.5 TO 5 HOURS INTRAVENOUS), (40 MG 1X/4 WEEKS INTRAVENOUS)
     Route: 042
     Dates: start: 20110405, end: 20110405
  10. PRIVIGEN [Suspect]
     Indication: HUMORAL IMMUNE DEFECT
     Dosage: (40 MG 1X/3 WEEKS, OVER 4.5 TO 5 HOURS INTRAVENOUS), (40 MG 1X/4 WEEKS INTRAVENOUS)
     Route: 042
     Dates: start: 20100601
  11. PRIVIGEN [Suspect]
     Indication: PRIMARY IMMUNODEFICIENCY SYNDROME
     Dosage: (40 MG 1X/3 WEEKS, OVER 4.5 TO 5 HOURS INTRAVENOUS), (40 MG 1X/4 WEEKS INTRAVENOUS)
     Route: 042
     Dates: start: 20100601
  12. PRIVIGEN [Suspect]
  13. PRIVIGEN [Suspect]
  14. PRIVIGEN [Suspect]
  15. PRIVIGEN [Suspect]
  16. NEXIUM [Concomitant]
  17. CLONAZEPAM [Concomitant]
  18. CALCIUM CITRATE (CALCIUM CITRATE) [Concomitant]
  19. PRIVIGEN [Suspect]
  20. PRIVIGEN [Suspect]
  21. ROBAXISAL (ROBAXISAL) [Concomitant]
  22. CYMBALTA [Concomitant]
  23. ROZEREM (MELATONIN) [Concomitant]
  24. PRIVIGEN [Suspect]
  25. PRIVIGEN [Suspect]
  26. PRIVIGEN [Suspect]
  27. TOPAMAX [Concomitant]

REACTIONS (1)
  - RENAL FAILURE CHRONIC [None]
